FAERS Safety Report 9868037 (Version 1)
Quarter: 2014Q1

REPORT INFORMATION
  Report Type: Spontaneous
  Country: BR (occurrence: BR)
  Receive Date: 20140204
  Receipt Date: 20140204
  Transmission Date: 20141002
  Serious: Yes (Other)
  Sender: FDA-Public Use
  Company Number: PHHY2014BR012376

PATIENT
  Sex: Female

DRUGS (3)
  1. ZADITEN [Suspect]
     Dosage: UNK UKN, UNK, (120 ML)
  2. ZADITEN [Suspect]
     Dosage: UNK UKN, UNK (1 MG)
  3. DIOVAN [Suspect]
     Dosage: UNK UKN, UNK, (320 MG)

REACTIONS (1)
  - Diabetes mellitus [Unknown]
